FAERS Safety Report 8227031-8 (Version None)
Quarter: 2012Q1

REPORT INFORMATION
  Report Type: 
  Country: None (occurrence: None)
  Receive Date: 20120322
  Receipt Date: 20120316
  Transmission Date: 20120608
  Serious: No
  Sender: FDA-Public Use
  Company Number: US-PFIZER INC-2011051744

PATIENT
  Sex: Male

DRUGS (13)
  1. TIKOSYN [Suspect]
     Dosage: 250 UG, 2X/DAY
  2. CRESTOR [Concomitant]
  3. METHOCARBAMOL [Concomitant]
  4. TIKOSYN [Suspect]
     Indication: ATRIAL FIBRILLATION
     Dosage: 125 UG, 2X/DAY (125MCG OF 12 HRS)
     Route: 048
  5. JANTOVEN [Concomitant]
  6. CARVEDILOL [Concomitant]
  7. COREG [Concomitant]
  8. ASPIRIN [Concomitant]
  9. FINASTERIDE [Concomitant]
  10. ALPRAZOLAM [Concomitant]
  11. TIKOSYN [Concomitant]
  12. LISINOPRIL [Concomitant]
  13. TORSEMIDE [Concomitant]

REACTIONS (3)
  - DYSPHONIA [None]
  - BLOOD PRESSURE INCREASED [None]
  - INCORRECT DOSE ADMINISTERED [None]
